FAERS Safety Report 15487847 (Version 2)
Quarter: 2018Q4

REPORT INFORMATION
  Report Type: Spontaneous
  Country: US (occurrence: US)
  Receive Date: 20181011
  Receipt Date: 20181115
  Transmission Date: 20190205
  Serious: No
  Sender: FDA-Public Use
  Company Number: US-PFIZER INC-2018405697

PATIENT

DRUGS (4)
  1. METHOTREXATE SODIUM. [Suspect]
     Active Substance: METHOTREXATE SODIUM
     Indication: PITYRIASIS RUBRA PILARIS
     Dosage: UNK
  2. HUMIRA [Suspect]
     Active Substance: ADALIMUMAB
     Indication: PITYRIASIS RUBRA PILARIS
     Dosage: UNK
  3. INFLIXIMAB [Suspect]
     Active Substance: INFLIXIMAB
     Indication: PITYRIASIS RUBRA PILARIS
     Dosage: UNK
  4. CYCLOSPORINE. [Suspect]
     Active Substance: CYCLOSPORINE
     Indication: PITYRIASIS RUBRA PILARIS
     Dosage: UNK
     Route: 065

REACTIONS (3)
  - Treatment failure [Unknown]
  - Product use in unapproved indication [Unknown]
  - Interleukin level increased [Unknown]
